FAERS Safety Report 18019465 (Version 1)
Quarter: 2020Q3

REPORT INFORMATION
  Report Type: Report from Study
  Country: SA (occurrence: SA)
  Receive Date: 20200714
  Receipt Date: 20200714
  Transmission Date: 20201103
  Serious: Yes (Other)
  Sender: FDA-Public Use
  Company Number: SA-EMD SERONO-9174103

PATIENT
  Age: 30 Year
  Sex: Male

DRUGS (1)
  1. REBIF [Suspect]
     Active Substance: INTERFERON BETA-1A
     Indication: MULTIPLE SCLEROSIS
     Dates: start: 20200513

REACTIONS (4)
  - Chills [Unknown]
  - Impaired quality of life [Unknown]
  - Depression [Unknown]
  - Hallucination [Unknown]

NARRATIVE: CASE EVENT DATE: 20200701
